FAERS Safety Report 8880986 (Version 1)
Quarter: 2012Q4

REPORT INFORMATION
  Report Type: 
  Country: US (occurrence: US)
  Receive Date: 20121101
  Receipt Date: 20121101
  Transmission Date: 20130627
  Serious: Yes (Other)
  Sender: FDA-Public Use
  Company Number: US-PFIZER INC-HQWYE753503AUG04

PATIENT
  Age: 63 Year
  Sex: Female
  Weight: 48 kg

DRUGS (11)
  1. PROVERA [Suspect]
     Indication: HORMONE REPLACEMENT THERAPY
     Dosage: UNK
     Route: 048
     Dates: start: 198810, end: 199512
  2. PREMPRO [Suspect]
     Indication: HORMONE REPLACEMENT THERAPY
     Dosage: UNK
     Route: 048
     Dates: start: 199510, end: 199611
  3. PREMARIN [Suspect]
     Indication: HORMONE REPLACEMENT THERAPY
     Dosage: UNK
     Route: 048
     Dates: start: 199412, end: 199510
  4. OGEN [Suspect]
     Indication: HORMONE REPLACEMENT THERAPY
     Dosage: UNK
     Dates: start: 198810, end: 199412
  5. MEDROXYPROGESTERONE ACETATE [Suspect]
     Indication: HORMONE REPLACEMENT THERAPY
     Dosage: UNK
     Dates: start: 1995, end: 1995
  6. CYCRIN [Suspect]
     Indication: HORMONE REPLACEMENT THERAPY
     Dosage: 2.5 mg, UNK
     Route: 048
     Dates: start: 19950724, end: 19960609
  7. CYCRIN [Suspect]
     Dosage: 10 mg, UNK
     Route: 048
     Dates: start: 19960802, end: 19990627
  8. MEDROXYPROGESTERONE ACETATE [Suspect]
     Indication: HORMONE REPLACEMENT THERAPY
     Dosage: 10 mg, UNK
     Dates: start: 19990113, end: 20000209
  9. ESTRADIOL [Suspect]
     Indication: HORMONE REPLACEMENT THERAPY
     Dosage: 2 mg, UNK
     Dates: start: 19960529, end: 19960726
  10. ESTRADIOL [Suspect]
     Dosage: 1 mg, UNK
     Dates: start: 19961223, end: 20000209
  11. LIPITOR [Concomitant]
     Indication: BLOOD CHOLESTEROL DECREASED
     Dosage: 20 mg, UNK
     Dates: start: 19990318, end: 20030916

REACTIONS (1)
  - Breast cancer [Unknown]
